FAERS Safety Report 4432805-5 (Version None)
Quarter: 2004Q3

REPORT INFORMATION
  Report Type: 
  Country: None (occurrence: None)
  Receive Date: 20040823
  Receipt Date: 20040812
  Transmission Date: 20050211
  Serious: Yes (Hospitalization)
  Sender: FDA-Public Use
  Company Number: 2004222440GB

PATIENT
  Age: 69 Year
  Sex: Male

DRUGS (10)
  1. CAVERJECT [Suspect]
     Indication: ERECTILE DYSFUNCTION
     Dosage: PRN, INT CORP CAVERN
     Dates: start: 20040625
  2. DOXAZOSIN (DOXAZOSIN) [Concomitant]
  3. GLICLAZIDE (GLICLAZIDE) [Concomitant]
  4. OXYPRENOLOL (OXYPRENOLOL) [Concomitant]
  5. METFORMIN HCL [Concomitant]
  6. SIMVASTATIN [Concomitant]
  7. AMIODARONE HCL [Concomitant]
  8. ASPIRIN [Concomitant]
  9. OMEPRAZOLE [Concomitant]
  10. CLOPIDOGREL                (CLOPIDOGREL) [Concomitant]

REACTIONS (1)
  - ERYTHEMA MULTIFORME [None]
